FAERS Safety Report 21602618 (Version 1)
Quarter: 2022Q4

REPORT INFORMATION
  Report Type: Spontaneous
  Country: BE (occurrence: BE)
  Receive Date: 20221116
  Receipt Date: 20221116
  Transmission Date: 20230113
  Serious: Yes (Life-Threatening, Hospitalization, Other)
  Sender: FDA-Public Use
  Company Number: BE-009507513-2210BEL007325

PATIENT
  Age: 71 Year
  Sex: Male
  Weight: 103 kg

DRUGS (12)
  1. BRIDION [Suspect]
     Active Substance: SUGAMMADEX
     Indication: Subdural haematoma evacuation
     Dosage: 400 MG, ONCE
     Dates: start: 20211218, end: 20211218
  2. ROCURONIUM BROMIDE [Concomitant]
     Active Substance: ROCURONIUM BROMIDE
     Indication: Anaesthesia
     Dosage: 80 MILLIGRAM
     Route: 042
     Dates: start: 20211218, end: 20211218
  3. GLUCOPHAGE [Concomitant]
     Active Substance: METFORMIN HYDROCHLORIDE
     Indication: Type 2 diabetes mellitus
     Dosage: 850 MILLIGRAM, BID
     Route: 048
  4. BISOPROLOL FUMARATE [Concomitant]
     Active Substance: BISOPROLOL FUMARATE
     Indication: Hypertension
     Dosage: 5 MILLIGRAM
     Route: 048
  5. ASPIRIN [Concomitant]
     Active Substance: ASPIRIN
     Indication: Myocardial ischaemia
     Dosage: 80 MILLIGRAM
     Route: 048
  6. ZOCOR [Concomitant]
     Active Substance: SIMVASTATIN
     Indication: Hypercholesterolaemia
     Dosage: 40 MILLIGRAM
     Route: 048
  7. MEDROL COMP [Concomitant]
     Indication: Subdural haematoma
     Dosage: 32 MILLIGRAM
     Route: 048
  8. AMLODIPINE BESYLATE [Concomitant]
     Active Substance: AMLODIPINE BESYLATE
     Indication: Hypertension
     Dosage: 5 MILLIGRAM
     Route: 048
  9. PROPOFOL [Concomitant]
     Active Substance: PROPOFOL
     Indication: Anaesthesia
     Dosage: UNK
     Route: 042
     Dates: start: 20211218, end: 20211218
  10. REMIFENTANIL [Concomitant]
     Active Substance: REMIFENTANIL
     Indication: Anaesthesia
     Dosage: UNK
     Route: 042
     Dates: start: 20211218, end: 20211218
  11. LIDOCAINE [Concomitant]
     Active Substance: LIDOCAINE
     Dosage: 100 MILLIGRAM
     Route: 042
     Dates: start: 20211218, end: 20211218
  12. CEFAZOLIN [Concomitant]
     Active Substance: CEFAZOLIN
     Indication: Antibiotic therapy
     Dosage: 2 GRAM
     Route: 042
     Dates: start: 20211218, end: 20211218

REACTIONS (1)
  - Anaphylactic shock [Recovered/Resolved]

NARRATIVE: CASE EVENT DATE: 20211218
